FAERS Safety Report 4585691-7 (Version None)
Quarter: 2005Q1

REPORT INFORMATION
  Report Type: 
  Country: None (occurrence: None)
  Receive Date: 20050214
  Receipt Date: 20050131
  Transmission Date: 20050727
  Serious: Yes (Hospitalization)
  Sender: FDA-Public Use
  Company Number: 2005022825

PATIENT
  Age: 49 Year
  Sex: Female

DRUGS (4)
  1. XANAX [Suspect]
     Indication: ILL-DEFINED DISORDER
  2. NOMEGESTROL ACETATE (NOMEGESTROL ACETATE) [Suspect]
     Indication: ILL-DEFINED DISORDER
     Dosage: ORAL
     Route: 048
  3. PINAVERIUM BROMIDE (PINAVERIUM BROMIDE) [Suspect]
     Indication: ILL-DEFINED DISORDER
     Dosage: 50 MG, ORAL
     Route: 048
  4. IMATINIB MESILATE (IMATINIB MESILATE) [Concomitant]

REACTIONS (1)
  - NEUTROPENIA [None]
